FAERS Safety Report 7759968-8 (Version None)
Quarter: 2011Q3

REPORT INFORMATION
  Report Type: 
  Country: None (occurrence: None)
  Receive Date: 20110919
  Receipt Date: 20100622
  Transmission Date: 20111222
  Serious: No
  Sender: FDA-Public Use
  Company Number: US-BAYER-201027264NA

PATIENT
  Age: 30 Year
  Sex: Female

DRUGS (1)
  1. MIRENA [Suspect]
     Indication: CONTRACEPTION
     Dosage: UNK
     Dates: start: 20091204

REACTIONS (6)
  - GENITAL HAEMORRHAGE [None]
  - AMENORRHOEA [None]
  - VULVOVAGINAL DRYNESS [None]
  - LIBIDO DECREASED [None]
  - MEDICAL DEVICE COMPLICATION [None]
  - GENITAL INFECTION BACTERIAL [None]
